FAERS Safety Report 9154450 (Version 3)
Quarter: 2014Q1

REPORT INFORMATION
  Report Type: Spontaneous
  Country: CA (occurrence: CA)
  Receive Date: 20130311
  Receipt Date: 20140123
  Transmission Date: 20141002
  Serious: Yes (Other)
  Sender: FDA-Public Use
  Company Number: CA-ASTRAZENECA-2013SE13845

PATIENT
  Age: 817 Month
  Sex: Female
  Weight: 95.3 kg

DRUGS (5)
  1. ARIMIDEX [Suspect]
     Indication: BREAST CANCER FEMALE
     Route: 048
     Dates: start: 201207, end: 20130211
  2. CIPRALEX [Concomitant]
     Indication: MAJOR DEPRESSION
     Route: 048
  3. WELLBUTRIN XL [Concomitant]
     Indication: MAJOR DEPRESSION
     Route: 048
  4. RITALIN [Concomitant]
  5. ANTIDEPRESSANT [Concomitant]

REACTIONS (20)
  - Suicidal ideation [Recovered/Resolved]
  - Depression [Recovered/Resolved]
  - Anxiety [Recovering/Resolving]
  - Insomnia [Recovered/Resolved]
  - Feeling abnormal [Recovered/Resolved]
  - Fear [Unknown]
  - Hallucination, auditory [Unknown]
  - Tremor [Unknown]
  - Hallucination, visual [Unknown]
  - Condition aggravated [Unknown]
  - Incoherent [Unknown]
  - Sense of oppression [Unknown]
  - Speech disorder [Unknown]
  - Mental status changes [Recovered/Resolved]
  - Hallucination [Recovered/Resolved]
  - Hyperhidrosis [Unknown]
  - Hot flush [Unknown]
  - Decreased appetite [Recovered/Resolved]
  - Hypoaesthesia [Recovering/Resolving]
  - Drug dose omission [Unknown]
